FAERS Safety Report 21615846 (Version 1)
Quarter: 2022Q4

REPORT INFORMATION
  Report Type: Spontaneous
  Country: CN (occurrence: CN)
  Receive Date: 20221118
  Receipt Date: 20221118
  Transmission Date: 20230113
  Serious: Yes (Other)
  Sender: FDA-Public Use
  Company Number: None

PATIENT
  Age: 2 Year
  Sex: Male
  Weight: 11.8 kg

DRUGS (4)
  1. CYCLOPHOSPHAMIDE [Suspect]
     Active Substance: CYCLOPHOSPHAMIDE
     Indication: Retroperitoneal neoplasm
     Dosage: 0.65 G, QD, DILUTED WITH 100 ML OF 4:1 GLUCOSE AND SODIUM CHLORIDE
     Route: 041
     Dates: start: 20220929, end: 20220930
  2. DEXTROSE\SODIUM CHLORIDE [Suspect]
     Active Substance: DEXTROSE\SODIUM CHLORIDE
     Indication: Medication dilution
     Dosage: 4:1, 100 ML, QD, USED TO DILUTE 0.65G OF CYCLOPHOSPHAMIDE
     Route: 041
     Dates: start: 20220929, end: 20220930
  3. SODIUM CHLORIDE [Suspect]
     Active Substance: SODIUM CHLORIDE
     Indication: Medication dilution
     Dosage: 250 ML, QD, USED TO DILUTE 20 MG OF EPIRUBICIN HYDROCHLORIDE
     Route: 041
     Dates: start: 20220929, end: 20220930
  4. EPIRUBICIN [Suspect]
     Active Substance: EPIRUBICIN
     Indication: Retroperitoneal neoplasm
     Dosage: 20 MG, QD, DILUTED WITH 250 ML OF 0.9% SODIUM CHLORIDE.
     Route: 041
     Dates: start: 20220929, end: 20220930

REACTIONS (1)
  - Myelosuppression [Recovering/Resolving]

NARRATIVE: CASE EVENT DATE: 20221007
